FAERS Safety Report 19139849 (Version 2)
Quarter: 2021Q3

REPORT INFORMATION
  Report Type: Spontaneous
  Country: US (occurrence: US)
  Receive Date: 20210415
  Receipt Date: 20210831
  Transmission Date: 20211014
  Serious: No
  Sender: FDA-Public Use
  Company Number: US-BAYER-2021-123149

PATIENT
  Age: 30 Year
  Sex: Female

DRUGS (1)
  1. MIRENA [Suspect]
     Active Substance: LEVONORGESTREL
     Indication: CONTRACEPTION
     Dosage: 20 ?G PER DAY CONTINUOUSLY
     Route: 015
     Dates: start: 201807, end: 20210323

REACTIONS (4)
  - Abnormal uterine bleeding [None]
  - Heavy menstrual bleeding [None]
  - Unintentional medical device removal [Recovered/Resolved]
  - Dysmenorrhoea [None]

NARRATIVE: CASE EVENT DATE: 20180823
